FAERS Safety Report 6417624-2 (Version None)
Quarter: 2009Q4

REPORT INFORMATION
  Report Type: 
  Country: None (occurrence: None)
  Receive Date: 20091028
  Receipt Date: 20090820
  Transmission Date: 20100525
  Serious: Yes (Disabling, Other)
  Sender: FDA-Public Use
  Company Number: US-BAYER-200910253NA

PATIENT
  Age: 60 Year
  Sex: Male
  Weight: 113 kg

DRUGS (27)
  1. MAGNEVIST [Suspect]
     Indication: NUCLEAR MAGNETIC RESONANCE IMAGING BRAIN
     Dates: start: 20010729, end: 20010729
  2. MAGNEVIST [Suspect]
     Dosage: TOTAL DAILY DOSE: 30 ML
     Dates: start: 20050518, end: 20050518
  3. OMNISCAN [Suspect]
  4. OPTIMARK [Suspect]
  5. MULTIHANCE [Suspect]
  6. PROHANCE [Suspect]
  7. UNSPECIFIED CONTRAST [Suspect]
     Indication: ANGIOGRAM
     Dates: start: 20010813, end: 20010813
  8. UNSPECIFIED CONTRAST [Suspect]
     Dosage: THIS MRI PER PATIENT; NO REPORT IN THIS SET OF MEDICAL RECORDS
     Dates: start: 20050501, end: 20050501
  9. LEVOTHYROXINE SODIUM [Concomitant]
  10. PLAVIX [Concomitant]
  11. CITALOPRAM HYDROBROMIDE [Concomitant]
  12. CALCITRIOL [Concomitant]
  13. LIPITOR [Concomitant]
  14. CARVEDILOL [Concomitant]
  15. RANITIDINE [Concomitant]
  16. SEVELAMER [Concomitant]
     Dosage: TOTAL DAILY DOSE: 1600 MG
     Route: 048
  17. HYDROCODONE [Concomitant]
     Indication: PAIN
     Dosage: AS USED: 5 MG
     Route: 048
     Dates: start: 20060601
  18. NEPHROCAPS [Concomitant]
  19. IRON SUPPLEMENTS [Concomitant]
  20. NPH INSULIN [Concomitant]
     Dosage: 40 BID
  21. AMMONIUM LACTATE 12% LOTION [Concomitant]
     Indication: DRY SKIN
     Route: 061
  22. FUROSEMIDE [Concomitant]
     Indication: FLUID RETENTION
     Dosage: 80 MG QAM AND 80 MG QHS
     Route: 048
  23. EPOGEN [Concomitant]
     Dosage: EVERY WEEK
     Route: 058
  24. PROCRIT [Concomitant]
  25. ZEMPLAR [Concomitant]
  26. PHOSLO [Concomitant]
     Indication: BLOOD PHOSPHORUS INCREASED
     Dosage: DISCONTINUED (DATE UNKNOWN) AS IT WAS NOT CONTROLLING PO4
  27. COREG [Concomitant]
     Dosage: 25 BID

REACTIONS (26)
  - ABDOMINAL PAIN UPPER [None]
  - ANHEDONIA [None]
  - ANXIETY [None]
  - DEFORMITY [None]
  - DRY SKIN [None]
  - EMOTIONAL DISTRESS [None]
  - GENERAL PHYSICAL HEALTH DETERIORATION [None]
  - JOINT RANGE OF MOTION DECREASED [None]
  - JOINT STIFFNESS [None]
  - MOTOR DYSFUNCTION [None]
  - MUSCLE TIGHTNESS [None]
  - MUSCULAR WEAKNESS [None]
  - MUSCULOSKELETAL STIFFNESS [None]
  - NEPHROGENIC SYSTEMIC FIBROSIS [None]
  - OEDEMA [None]
  - PAIN IN EXTREMITY [None]
  - PATHOLOGICAL FRACTURE [None]
  - PEAU D'ORANGE [None]
  - POSTURE ABNORMAL [None]
  - RASH PAPULAR [None]
  - SCAR [None]
  - SKIN FIBROSIS [None]
  - SKIN HYPERTROPHY [None]
  - SKIN INDURATION [None]
  - SKIN LESION [None]
  - SKIN TIGHTNESS [None]
